FAERS Safety Report 9484801 (Version 3)
Quarter: 2013Q3

REPORT INFORMATION
  Report Type: Spontaneous
  Country: US (occurrence: US)
  Receive Date: 20130828
  Receipt Date: 20130927
  Transmission Date: 20140515
  Serious: Yes (Other)
  Sender: FDA-Public Use
  Company Number: US-TMC-CABO-13002849

PATIENT
  Age: 45 Year
  Sex: Male
  Weight: 76 kg

DRUGS (1)
  1. COMETRIQ [Suspect]
     Indication: RENAL CANCER
     Dosage: 140 MG, QD
     Route: 048
     Dates: start: 20130606

REACTIONS (10)
  - Swelling face [Unknown]
  - Fatigue [Unknown]
  - Dysgeusia [Unknown]
  - Diarrhoea [Unknown]
  - Blister [Unknown]
  - Nausea [Unknown]
  - Vomiting [Unknown]
  - Odynophagia [Unknown]
  - Choking [Unknown]
  - Off label use [Unknown]
